FAERS Safety Report 7915464-6 (Version None)
Quarter: 2011Q4

REPORT INFORMATION
  Report Type: 
  Country: None (occurrence: None)
  Receive Date: 20111115
  Receipt Date: 20111110
  Transmission Date: 20120403
  Serious: Yes (Life-Threatening)
  Sender: FDA-Public Use
  Company Number: CHPA2011US015939

PATIENT
  Sex: Female

DRUGS (2)
  1. ANALGESICS [Suspect]
     Route: 065
  2. EXCEDRIN (MIGRAINE) [Suspect]
     Dosage: UNK, UNK
     Route: 065

REACTIONS (1)
  - PAIN [None]
